FAERS Safety Report 7730045-5 (Version None)
Quarter: 2011Q3

REPORT INFORMATION
  Report Type: 
  Country: None (occurrence: None)
  Receive Date: 20110906
  Receipt Date: 20110826
  Transmission Date: 20111222
  Serious: Yes (Life-Threatening)
  Sender: FDA-Public Use
  Company Number: NO-ROCHE-799224

PATIENT
  Sex: Female

DRUGS (1)
  1. XELODA [Suspect]
     Indication: COLORECTAL CANCER
     Route: 048
     Dates: end: 20110821

REACTIONS (4)
  - MUCOUS MEMBRANE DISORDER [None]
  - SKIN REACTION [None]
  - PERIPHERAL COLDNESS [None]
  - PALLOR [None]
